FAERS Safety Report 6836164-X (Version None)
Quarter: 2010Q3

REPORT INFORMATION
  Report Type: 
  Country: None (occurrence: None)
  Receive Date: 20100713
  Receipt Date: 20100705
  Transmission Date: 20110219
  Serious: Yes (Other)
  Sender: FDA-Public Use
  Company Number: JP-PFIZER INC-2010083329

PATIENT

DRUGS (1)
  1. NORVASC [Suspect]
     Dosage: 20 MG DAILY
     Route: 048

REACTIONS (2)
  - HYPOKALAEMIA [None]
  - LIVER FUNCTION TEST ABNORMAL [None]
